FAERS Safety Report 6357613-X (Version None)
Quarter: 2009Q3

REPORT INFORMATION
  Report Type: 
  Country: None (occurrence: None)
  Receive Date: 20090916
  Receipt Date: 20090911
  Transmission Date: 20100115
  Serious: Yes (Death, Hospitalization)
  Sender: FDA-Public Use
  Company Number: PHHY2009MX37493

PATIENT
  Age: 62 Year
  Sex: Male

DRUGS (1)
  1. STALEVO 100 [Suspect]
     Indication: PARKINSON'S DISEASE
     Dosage: 200/50/12.5 MG, 1 DF/DAY
     Route: 048
     Dates: start: 20070101

REACTIONS (3)
  - FALL [None]
  - HEAD INJURY [None]
  - RESPIRATORY ARREST [None]
